FAERS Safety Report 7912491-X (Version None)
Quarter: 2011Q4

REPORT INFORMATION
  Report Type: 
  Country: None (occurrence: None)
  Receive Date: 20111114
  Receipt Date: 20111107
  Transmission Date: 20120403
  Serious: No
  Sender: FDA-Public Use
  Company Number: US-PFIZER INC-2011273295

PATIENT
  Age: 68 Year
  Sex: Female
  Weight: 88.889 kg

DRUGS (7)
  1. ALLOPURINOL [Concomitant]
     Indication: GOUT
     Dosage: 100 MG, DAILY
  2. TOVIAZ [Suspect]
     Dosage: 4 MG, DAILY
     Route: 048
     Dates: start: 20111104, end: 20111105
  3. TOPROL-XL [Concomitant]
     Indication: HYPERTENSION
     Dosage: 25 MG, 2X/DAY
  4. PREDNISONE [Concomitant]
     Dosage: 10 MG, 2X/DAY
     Dates: start: 20111104
  5. PREDNISONE [Concomitant]
     Indication: INFLAMMATION
     Dosage: UNK
  6. REGLAN [Concomitant]
     Indication: GASTRIC NEOPLASM
     Dosage: 10 MG, 4X/DAY
  7. NORVASC [Concomitant]
     Indication: HYPERTENSION
     Dosage: 5 MG, DAILY

REACTIONS (1)
  - POLLAKIURIA [None]
